FAERS Safety Report 4560683-2 (Version None)
Quarter: 2005Q1

REPORT INFORMATION
  Report Type: 
  Country: None (occurrence: None)
  Receive Date: 20050121
  Receipt Date: 20050113
  Transmission Date: 20050727
  Serious: Yes (Other)
  Sender: FDA-Public Use
  Company Number: 2004-12-1228

PATIENT
  Age: 53 Year
  Sex: Male
  Weight: 60 kg

DRUGS (7)
  1. REBETOL [Suspect]
     Indication: HEPATITIS C
     Dosage: 600 MG ORAL
     Route: 048
     Dates: start: 20021107, end: 20021111
  2. INTRON A [Suspect]
     Indication: HEPATITIS C
     Dosage: SEE IMAGE
     Route: 030
     Dates: start: 20021107, end: 20021111
  3. INTRON A [Suspect]
     Indication: HEPATITIS C
     Dosage: SEE IMAGE
     Route: 030
     Dates: start: 20021125
  4. URSO 250 [Concomitant]
  5. LIVACT (ISOLEUCINE/LEUCINE/VALINE) [Concomitant]
  6. MONILAC [Concomitant]
  7. STRONGER NEO MINOPHAGEN [Concomitant]

REACTIONS (2)
  - AGRANULOCYTOSIS [None]
  - APLASTIC ANAEMIA [None]
